FAERS Safety Report 7809424-3 (Version None)
Quarter: 2011Q4

REPORT INFORMATION
  Report Type: 
  Country: None (occurrence: None)
  Receive Date: 20111006
  Receipt Date: 20110920
  Transmission Date: 20120403
  Serious: Yes (Hospitalization, Other)
  Sender: FDA-Public Use
  Company Number: JP-20110030

PATIENT
  Age: 69 Year
  Sex: Male

DRUGS (3)
  1. CISPLATIN [Suspect]
     Indication: THERAPEUTIC EMBOLISATION
     Dosage: INTRA-ARTERIAL
     Route: 013
     Dates: start: 20081001, end: 20081001
  2. (LIPIODOL ULTRA) [Suspect]
     Indication: THERAPEUTIC EMBOLISATION
     Dosage: INTRA-ARTERIAL
     Route: 013
     Dates: start: 20081001, end: 20081001
  3. GELPART (GELATINE) [Suspect]
     Indication: THERAPEUTIC EMBOLISATION
     Dosage: INTRA-ARTERIAL
     Route: 013
     Dates: start: 20081001, end: 20081001

REACTIONS (4)
  - BACK PAIN [None]
  - OFF LABEL USE [None]
  - PURPURA [None]
  - SKIN ULCER [None]
